FAERS Safety Report 19868081 (Version 1)
Quarter: 2021Q3

REPORT INFORMATION
  Report Type: Other
  Country: IT (occurrence: IT)
  Receive Date: 20210922
  Receipt Date: 20210922
  Transmission Date: 20211014
  Serious: Yes (Hospitalization)
  Sender: FDA-Public Use
  Company Number: IT-COLLEGIUM PHARMACEUTICAL, INC.-2021CGM01037

PATIENT
  Age: 57 Year
  Sex: Male

DRUGS (9)
  1. LYRICA [Concomitant]
     Active Substance: PREGABALIN
  2. NORVASC [Concomitant]
     Active Substance: AMLODIPINE BESYLATE
  3. BORTEZOMIB. [Suspect]
     Active Substance: BORTEZOMIB
     Indication: PLASMA CELL MYELOMA
     Dosage: 1 DOSAGE FORM
     Route: 042
  4. ACICLOVIR [Concomitant]
     Active Substance: ACYCLOVIR
  5. IPSTYL [Concomitant]
     Active Substance: LANREOTIDE ACETATE
  6. BACTRIM [Concomitant]
     Active Substance: SULFAMETHOXAZOLE\TRIMETHOPRIM
  7. OMEPRAZOLE. [Suspect]
     Active Substance: OMEPRAZOLE
     Indication: PRODUCT USED FOR UNKNOWN INDICATION
     Dosage: 1 DOSAGE FORM, 1X/DAY
     Route: 048
  8. TAPENTADOL [Suspect]
     Active Substance: TAPENTADOL
     Indication: NEUROPATHY PERIPHERAL
     Dosage: 1 DOSAGE FORM, AS NEEDED
     Route: 048
  9. RIOPAN [Concomitant]

REACTIONS (1)
  - Inappropriate antidiuretic hormone secretion [Recovering/Resolving]

NARRATIVE: CASE EVENT DATE: 20210727
